FAERS Safety Report 8884602 (Version 1)
Quarter: 2012Q4

REPORT INFORMATION
  Report Type: 
  Country: GB (occurrence: GB)
  Receive Date: 20121102
  Receipt Date: 20121102
  Transmission Date: 20130627
  Serious: Yes (Disabling)
  Sender: FDA-Public Use
  Company Number: GB-PFIZER INC-2012272453

PATIENT
  Age: 36 Year
  Sex: Female
  Weight: 96 kg

DRUGS (2)
  1. CHAMPIX [Suspect]
     Indication: SMOKING CESSATION THERAPY
     Dosage: UNK
     Route: 048
     Dates: start: 20121006, end: 20121016
  2. AMOXYCILLIN [Concomitant]
     Dosage: UNK

REACTIONS (3)
  - Depression [Recovering/Resolving]
  - Tearfulness [Recovering/Resolving]
  - Negative thoughts [Recovering/Resolving]
